FAERS Safety Report 20557320 (Version 1)
Quarter: 2022Q1

REPORT INFORMATION
  Report Type: Spontaneous
  Country: RU (occurrence: RU)
  Receive Date: 20220307
  Receipt Date: 20220307
  Transmission Date: 20220423
  Serious: Yes (Other)
  Sender: FDA-Public Use
  Company Number: RU-ABBOTT-2022A-1346319

PATIENT
  Age: 6 Year
  Sex: Male
  Weight: 21 kg

DRUGS (2)
  1. CREON [Suspect]
     Active Substance: PANCRELIPASE AMYLASE\PANCRELIPASE LIPASE\PANCRELIPASE PROTEASE
     Indication: Cystic fibrosis
     Dosage: TOOK 26 CAPSULES ORALLY WITH FOOD, CREON 10000
     Route: 048
     Dates: start: 20200523, end: 20200618
  2. CREON [Suspect]
     Active Substance: PANCRELIPASE AMYLASE\PANCRELIPASE LIPASE\PANCRELIPASE PROTEASE
     Indication: Cystic fibrosis
     Dosage: TOOK 12 CAPSULES ORALLY WITH FOOD, CREON 25000
     Route: 048
     Dates: start: 20200523, end: 20200618

REACTIONS (1)
  - Steatorrhoea [Recovering/Resolving]

NARRATIVE: CASE EVENT DATE: 20200524
